FAERS Safety Report 5897783-0 (Version None)
Quarter: 2008Q3

REPORT INFORMATION
  Report Type: 
  Country: None (occurrence: None)
  Receive Date: 20080925
  Receipt Date: 20080925
  Transmission Date: 20090109
  Serious: Yes (Hospitalization)
  Sender: FDA-Public Use
  Company Number: PHEH1996US08483

PATIENT
  Sex: Female
  Weight: 102.8 kg

DRUGS (9)
  1. NEORAL [Suspect]
     Route: 048
     Dates: start: 19950830
  2. GLUCOTROL [Concomitant]
  3. LASIX [Concomitant]
  4. PREDNISONE [Concomitant]
  5. CAPTOPRIL [Concomitant]
  6. ZANTAC 150 [Concomitant]
  7. BACTRIM DS [Concomitant]
  8. ASPIRIN [Concomitant]
  9. MAGNESIUM OXIDE [Concomitant]

REACTIONS (3)
  - BLOOD PRESSURE DECREASED [None]
  - LEFT VENTRICULAR FAILURE [None]
  - TRANSPLANT REJECTION [None]
